FAERS Safety Report 16453242 (Version 3)
Quarter: 2020Q2

REPORT INFORMATION
  Report Type: Report from Study
  Country: US (occurrence: US)
  Receive Date: 20190619
  Receipt Date: 20200422
  Transmission Date: 20200713
  Serious: No
  Sender: FDA-Public Use
  Company Number: PHEH2019US025281

PATIENT
  Sex: Female

DRUGS (1)
  1. PROMACTA [Suspect]
     Active Substance: ELTROMBOPAG OLAMINE
     Indication: IMMUNE THROMBOCYTOPENIA
     Dosage: UNK, QD
     Route: 048

REACTIONS (7)
  - Platelet count decreased [Unknown]
  - Dry skin [Unknown]
  - Peripheral swelling [Unknown]
  - Joint swelling [Unknown]
  - Pruritus [Unknown]
  - Limb discomfort [Unknown]
  - Abdominal discomfort [Unknown]
